FAERS Safety Report 13965106 (Version 1)
Quarter: 2017Q3

REPORT INFORMATION
  Report Type: Spontaneous
  Country: US (occurrence: US)
  Receive Date: 20170913
  Receipt Date: 20170913
  Transmission Date: 20171128
  Serious: No
  Sender: FDA-Public Use
  Company Number: US-PERRIGO-17US023638

PATIENT
  Sex: Female

DRUGS (1)
  1. EVAMIST [Suspect]
     Active Substance: ESTRADIOL
     Indication: PRODUCT USED FOR UNKNOWN INDICATION
     Dosage: UNKNOWN, UNKNOWN
     Route: 062
     Dates: start: 2016

REACTIONS (2)
  - Flushing [Unknown]
  - Erythema [Unknown]

NARRATIVE: CASE EVENT DATE: 201705
